FAERS Safety Report 24571414 (Version 1)
Quarter: 2024Q4

REPORT INFORMATION
  Report Type: Spontaneous
  Country: CH (occurrence: CH)
  Receive Date: 20241101
  Receipt Date: 20241101
  Transmission Date: 20250115
  Serious: Yes (Hospitalization)
  Sender: TEVA
  Company Number: None

PATIENT
  Age: 5 Year
  Sex: Female
  Weight: 13 kg

DRUGS (10)
  1. SULFAMETHOXAZOLE\TRIMETHOPRIM [Suspect]
     Active Substance: SULFAMETHOXAZOLE\TRIMETHOPRIM
     Indication: Product used for unknown indication
     Dosage: TIME INTERVAL: 0.33333333 WEEKS: 75MG 3X/WEEK BY PEG, NOPIL
     Route: 050
     Dates: start: 20240620, end: 20240628
  2. SULFAMETHOXAZOLE\TRIMETHOPRIM [Suspect]
     Active Substance: SULFAMETHOXAZOLE\TRIMETHOPRIM
     Indication: Product used for unknown indication
     Dosage: TIME INTERVAL: 0.33333333 WEEKS: 68MG 3X/WEEK
     Route: 048
     Dates: start: 202404, end: 20240605
  3. OLUMIANT [Suspect]
     Active Substance: BARICITINIB
     Indication: Systemic lupus erythematosus
     Route: 048
     Dates: start: 20240618, end: 20240628
  4. OLUMIANT [Suspect]
     Active Substance: BARICITINIB
     Indication: Systemic lupus erythematosus
     Route: 048
     Dates: start: 20220601, end: 20240609
  5. TACROLIMUS [Concomitant]
     Active Substance: TACROLIMUS
     Indication: Product used for unknown indication
     Dosage: 5MG THEN 10MG 1X/DAY
     Route: 048
     Dates: end: 20240610
  6. TACROLIMUS [Concomitant]
     Active Substance: TACROLIMUS
     Indication: Product used for unknown indication
     Dosage: 5MG THEN 10MG 1X/DAY
     Route: 048
     Dates: start: 20240611
  7. VALCYTE [Suspect]
     Active Substance: VALGANCICLOVIR HYDROCHLORIDE
     Indication: Cytomegalovirus test positive
     Route: 065
     Dates: start: 202404, end: 20240605
  8. AMOXICILLIN\CLAVULANATE POTASSIUM [Concomitant]
     Active Substance: AMOXICILLIN\CLAVULANATE POTASSIUM
     Indication: Product used for unknown indication
     Dosage: 5MG THEN 10MG 1X/DAY
     Route: 048
     Dates: start: 20240511, end: 20240515
  9. AMOXICILLIN\CLAVULANATE POTASSIUM [Concomitant]
     Active Substance: AMOXICILLIN\CLAVULANATE POTASSIUM
     Indication: Product used for unknown indication
     Dosage: 5MG THEN 10MG 1X/DAY
     Route: 048
     Dates: start: 20240417, end: 20240424
  10. ESOMEPRAZOLE [Concomitant]
     Active Substance: ESOMEPRAZOLE
     Indication: Product used for unknown indication
     Dosage: 5MG THEN 10MG 1X/DAY
     Route: 048
     Dates: end: 20240617

REACTIONS (2)
  - Agranulocytosis [Not Recovered/Not Resolved]
  - Agranulocytosis [Recovered/Resolved]

NARRATIVE: CASE EVENT DATE: 20240511
